FAERS Safety Report 11776489 (Version 1)
Quarter: 2015Q4

REPORT INFORMATION
  Report Type: Spontaneous
  Country: US (occurrence: US)
  Receive Date: 20151125
  Receipt Date: 20151125
  Transmission Date: 20160304
  Serious: No
  Sender: FDA-Public Use
  Company Number: US-ASTRAZENECA-2015SF12038

PATIENT

DRUGS (2)
  1. NEXIUM [Suspect]
     Active Substance: ESOMEPRAZOLE MAGNESIUM
     Dosage: DOSE UNKNOWN
     Route: 048
  2. PRILOSEC [Suspect]
     Active Substance: OMEPRAZOLE MAGNESIUM
     Dosage: DOSE UNKNOWN
     Route: 048

REACTIONS (4)
  - Gastrooesophageal reflux disease [Unknown]
  - Barrett^s oesophagus [Unknown]
  - Dyspepsia [Unknown]
  - Drug ineffective [Unknown]
